FAERS Safety Report 10069754 (Version 2)
Quarter: 2014Q2

REPORT INFORMATION
  Report Type: Report from Study
  Country: HU (occurrence: HU)
  Receive Date: 20140410
  Receipt Date: 20140410
  Transmission Date: 20141212
  Serious: Yes (Death, Hospitalization)
  Sender: FDA-Public Use
  Company Number: HU-ROCHE-1089265

PATIENT
  Age: 55 Year
  Sex: Male

DRUGS (4)
  1. CAPECITABINE [Suspect]
     Indication: PRODUCT USED FOR UNKNOWN INDICATION
     Route: 048
  2. CAPECITABINE [Suspect]
     Dosage: DOSE WAS REDUCED
     Route: 048
  3. CAPECITABINE [Suspect]
     Dosage: 16/NOV/2012
     Route: 048
  4. IRINOTECAN [Concomitant]

REACTIONS (8)
  - Dyspnoea [Recovering/Resolving]
  - Nausea [Recovering/Resolving]
  - Vomiting [Recovering/Resolving]
  - Diarrhoea [Recovering/Resolving]
  - Weight decreased [Not Recovered/Not Resolved]
  - Haemorrhage [Unknown]
  - Asthenia [Unknown]
  - Respiratory failure [Fatal]
